FAERS Safety Report 12245439 (Version 1)
Quarter: 2016Q2

REPORT INFORMATION
  Report Type: Spontaneous
  Country: US (occurrence: None)
  Receive Date: 20160406
  Receipt Date: 20160406
  Transmission Date: 20160815
  Serious: Yes (Disabling)
  Sender: FDA-Public Use
  Company Number: None

PATIENT
  Age: 52 Year
  Sex: Female
  Weight: 70.31 kg

DRUGS (5)
  1. LEVOFLAXACIN 500 MG. TAB GENERIC, 500 MG ZYDUS PHARMACEUTICAL [Suspect]
     Active Substance: LEVOFLOXACIN
     Indication: SINUSITIS
     Route: 048
     Dates: start: 20160328, end: 20160331
  2. ALBUTEROL. [Concomitant]
     Active Substance: ALBUTEROL
  3. EFFEXOR [Concomitant]
     Active Substance: VENLAFAXINE HYDROCHLORIDE
  4. IBUPROFEN. [Concomitant]
     Active Substance: IBUPROFEN
  5. LEVOFLAXACIN 500 MG. TAB GENERIC, 500 MG ZYDUS PHARMACEUTICAL [Suspect]
     Active Substance: LEVOFLOXACIN
     Indication: TOOTH INFECTION
     Route: 048
     Dates: start: 20160328, end: 20160331

REACTIONS (6)
  - Myalgia [None]
  - Muscular weakness [None]
  - Musculoskeletal pain [None]
  - Arthritis [None]
  - Tendon disorder [None]
  - Movement disorder [None]

NARRATIVE: CASE EVENT DATE: 20160328
